FAERS Safety Report 9451465 (Version 2)
Quarter: 2013Q3

REPORT INFORMATION
  Report Type: Spontaneous
  Country: US (occurrence: US)
  Receive Date: 20130810
  Receipt Date: 20130919
  Transmission Date: 20140515
  Serious: No
  Sender: FDA-Public Use
  Company Number: US-B.I. PHARMACEUTICALS,INC./RIDGEFIELD-2013-BI-23712BP

PATIENT
  Age: 82 Year
  Sex: Female
  Weight: 135 kg

DRUGS (7)
  1. COMBIVENT [Suspect]
     Indication: CHRONIC OBSTRUCTIVE PULMONARY DISEASE
     Dosage: STRENGTH: 20 MCG / 100 MCG; DAILY DOSE: 80 MCG/ 400 MCG
     Route: 055
     Dates: start: 201306, end: 20130801
  2. COMBIVENT [Suspect]
     Indication: BRONCHOSPASM
  3. ATROVENT INHALATION SOLUTION [Suspect]
     Indication: CHRONIC OBSTRUCTIVE PULMONARY DISEASE
     Dosage: 68 MCG
     Route: 055
     Dates: start: 20130802
  4. FLOVENT [Concomitant]
     Route: 055
  5. SPIRONOLACTONE [Concomitant]
     Route: 048
  6. ASPIRIN [Concomitant]
     Dosage: 162 MG
     Route: 048
  7. NEXIUM [Concomitant]
     Route: 048

REACTIONS (8)
  - Palpitations [Recovered/Resolved]
  - Feeling cold [Recovered/Resolved]
  - Irritability [Recovered/Resolved]
  - Anger [Recovered/Resolved]
  - Tremor [Not Recovered/Not Resolved]
  - Chest discomfort [Recovered/Resolved]
  - Palpitations [Recovered/Resolved]
  - Tremor [Recovered/Resolved]
